FAERS Safety Report 15561238 (Version 1)
Quarter: 2018Q4

REPORT INFORMATION
  Report Type: Spontaneous
  Country: US (occurrence: US)
  Receive Date: 20181029
  Receipt Date: 20181029
  Transmission Date: 20190205
  Serious: Yes (Hospitalization)
  Sender: FDA-Public Use
  Company Number: US-ACELLA PHARMACEUTICALS, LLC-2058166

PATIENT
  Age: 70 Year
  Sex: Male

DRUGS (3)
  1. AMITRIPTYLINE HYDROCHLORIDE. [Concomitant]
     Active Substance: AMITRIPTYLINE HYDROCHLORIDE
  2. ALPRAZOLAM. [Concomitant]
     Active Substance: ALPRAZOLAM
  3. GABAPENTIN. [Suspect]
     Active Substance: GABAPENTIN
     Indication: OVERDOSE

REACTIONS (4)
  - Myoclonus [Recovered/Resolved]
  - Delirium [Recovered/Resolved]
  - Dysuria [Recovered/Resolved]
  - Ataxia [Recovered/Resolved]
